FAERS Safety Report 12837652 (Version 4)
Quarter: 2016Q4

REPORT INFORMATION
  Report Type: Report from Study
  Country: PL (occurrence: PL)
  Receive Date: 20161012
  Receipt Date: 20161024
  Transmission Date: 20170207
  Serious: Yes (Hospitalization, Other)
  Sender: FDA-Public Use
  Company Number: PL-AMGEN-POLCT2016139838

PATIENT
  Age: 60 Year
  Sex: Male
  Weight: 101.9 kg

DRUGS (18)
  1. ATORVASTATIN [Concomitant]
     Active Substance: ATORVASTATIN
     Indication: DYSLIPIDAEMIA
     Dosage: 20-75 MG, QD
     Dates: start: 20140521
  2. FUROSEMIDE. [Concomitant]
     Active Substance: FUROSEMIDE
     Dosage: 40 MG, UNK
  3. NOOTROPIL [Concomitant]
     Active Substance: PIRACETAM
     Dosage: 1200 -2400 MG, UNK
  4. NITROMINT [Concomitant]
     Dosage: 0.4 MG, UNK
  5. SPIRONOL [Concomitant]
     Active Substance: SPIRONOLACTONE
     Dosage: 100 MG, UNK
  6. TARDYFERON FOL [Concomitant]
     Active Substance: FERROUS SULFATE\FOLIC ACID
  7. MESOPRAL [Concomitant]
     Dosage: 20 MG, UNK
  8. ISOSORBIDE MONONITRATE. [Concomitant]
     Active Substance: ISOSORBIDE MONONITRATE
     Dosage: 25 MG, UNK
  9. PREDUCTAL [Concomitant]
     Active Substance: TRIMETAZIDINE DIHYDROCHLORIDE
     Dosage: 70 MG, UNK
  10. POLPRIL [Concomitant]
     Active Substance: RAMIPRIL
     Dosage: 5 MG, UNK
  11. SIOFOR [Concomitant]
     Active Substance: METFORMIN HYDROCHLORIDE
     Dosage: 850 MG, UNK
  12. PREFILLED AUTOINJECTOR/PEN [Suspect]
     Active Substance: DEVICE
     Indication: DYSLIPIDAEMIA
     Dosage: UNK
     Route: 058
     Dates: start: 20140708
  13. POLOCARD [Concomitant]
     Active Substance: ASPIRIN
     Dosage: 75 MG, UNK
  14. AMG 145 [Suspect]
     Active Substance: EVOLOCUMAB
     Indication: DYSLIPIDAEMIA
     Dosage: UNK
     Route: 058
     Dates: start: 20140708
  15. DIAPREL [Concomitant]
     Active Substance: GLICLAZIDE
     Dosage: 30 MG, UNK
  16. ATRAM [Concomitant]
     Dosage: 25 MG, UNK
  17. POTAZEK [Concomitant]
     Dosage: 1220 MG, UNK
  18. VESSEL DUE [Concomitant]
     Dosage: 250 IU, UNK

REACTIONS (1)
  - Neoplasm [Not Recovered/Not Resolved]

NARRATIVE: CASE EVENT DATE: 20160916
